FAERS Safety Report 13641431 (Version 10)
Quarter: 2019Q1

REPORT INFORMATION
  Report Type: Report from Study
  Country: CA (occurrence: CA)
  Receive Date: 20170612
  Receipt Date: 20190222
  Transmission Date: 20190417
  Serious: Yes (Hospitalization, Other)
  Sender: FDA-Public Use
  Company Number: CA-BRISTOL-MYERS SQUIBB COMPANY-BMS-2015-094251

PATIENT
  Age: 55 Year
  Sex: Female

DRUGS (1)
  1. ABATACEPT [Suspect]
     Active Substance: ABATACEPT
     Indication: RHEUMATOID ARTHRITIS
     Dosage: 750 MG, Q4WK
     Route: 042
     Dates: start: 20080206

REACTIONS (15)
  - Nephrolithiasis [Unknown]
  - Fall [Unknown]
  - Pain [Recovered/Resolved]
  - Musculoskeletal pain [Unknown]
  - Vein collapse [Recovered/Resolved]
  - Arthralgia [Unknown]
  - Adverse event [Unknown]
  - Ankle fracture [Recovering/Resolving]
  - Skin ulcer [Not Recovered/Not Resolved]
  - Headache [Recovered/Resolved]
  - Arthritis [Not Recovered/Not Resolved]
  - Inflammation [Not Recovered/Not Resolved]
  - Osteoporosis [Unknown]
  - Blood pressure increased [Recovering/Resolving]
  - Wound [Unknown]

NARRATIVE: CASE EVENT DATE: 20170509
